FAERS Safety Report 9837049 (Version 2)
Quarter: 2014Q1

REPORT INFORMATION
  Report Type: Spontaneous
  Country: DK (occurrence: DK)
  Receive Date: 20140123
  Receipt Date: 20140131
  Transmission Date: 20141002
  Serious: Yes (Other)
  Sender: FDA-Public Use
  Company Number: DK-009507513-1401DNK008327

PATIENT
  Age: 70 Year
  Sex: Female

DRUGS (2)
  1. ALENDRONATE SODIUM [Suspect]
     Indication: OSTEOPOROSIS
     Dosage: UNK
     Route: 048
     Dates: start: 20060615, end: 20101231
  2. PROLIA [Suspect]
     Indication: OSTEOPOROSIS
     Dosage: UNK
     Route: 065
     Dates: start: 20110715, end: 20131206

REACTIONS (2)
  - Sequestrectomy [Recovered/Resolved]
  - Osteonecrosis of jaw [Not Recovered/Not Resolved]
